FAERS Safety Report 5753187-2 (Version None)
Quarter: 2008Q2

REPORT INFORMATION
  Report Type: 
  Country: None (occurrence: None)
  Receive Date: 20080530
  Receipt Date: 20080527
  Transmission Date: 20081010
  Serious: Yes (Hospitalization)
  Sender: FDA-Public Use
  Company Number: FR-BRISTOL-MYERS SQUIBB COMPANY-14205173

PATIENT
  Age: 89 Year
  Sex: Male

DRUGS (14)
  1. AMIKLIN INJ [Suspect]
     Route: 042
     Dates: start: 20080310, end: 20080310
  2. TAZOCILLINE [Suspect]
     Dosage: 1 DOSAGE = 4G/500MG.
     Dates: start: 20080310, end: 20080321
  3. NORSET [Suspect]
     Dates: start: 20080305, end: 20080321
  4. PERFALGAN IV [Concomitant]
     Route: 042
     Dates: start: 20080310, end: 20080311
  5. ASPIRIN [Concomitant]
     Indication: ISCHAEMIA
  6. MOPRAL [Concomitant]
     Indication: PROPHYLAXIS
  7. OMIX [Concomitant]
     Indication: OEDEMA
  8. MODOPAR [Concomitant]
     Dosage: 62.5 CAPS.
     Dates: start: 20080221
  9. KALEORID [Concomitant]
     Indication: HYPOKALAEMIA
     Dates: start: 20080227
  10. VASTEN [Concomitant]
     Indication: TRANSIENT ISCHAEMIC ATTACK
  11. PERINDOPRIL ERBUMINE [Concomitant]
     Indication: TRANSIENT ISCHAEMIC ATTACK
  12. MOTILIUM [Concomitant]
     Indication: NAUSEA
     Dosage: 3 DOSAGE FORM = 3 (UNITS NOT PROVIDED).
  13. CACIT D3 [Concomitant]
  14. FOSAMAX [Concomitant]
     Indication: OSTEOPOROSIS

REACTIONS (1)
  - THROMBOCYTOPENIA [None]
